FAERS Safety Report 6412781-6 (Version None)
Quarter: 2009Q4

REPORT INFORMATION
  Report Type: 
  Country: None (occurrence: None)
  Receive Date: 20091023
  Receipt Date: 20091014
  Transmission Date: 20100525
  Serious: Yes (Other)
  Sender: FDA-Public Use
  Company Number: US-ELI_LILLY_AND_COMPANY-US200909004200

PATIENT
  Sex: Female
  Weight: 77.098 kg

DRUGS (2)
  1. EVISTA [Suspect]
     Dosage: 60 MG, DAILY (1/D)
     Route: 048
     Dates: start: 20010101, end: 20090901
  2. PREMPRO [Concomitant]
     Dosage: UNK, UNKNOWN
     Route: 065
     Dates: start: 20000101, end: 20010101

REACTIONS (2)
  - COAGULOPATHY [None]
  - DEEP VEIN THROMBOSIS [None]
